FAERS Safety Report 13690280 (Version 1)
Quarter: 2017Q2

REPORT INFORMATION
  Report Type: Spontaneous
  Country: US (occurrence: US)
  Receive Date: 20170626
  Receipt Date: 20170626
  Transmission Date: 20170830
  Serious: Yes (Death)
  Sender: FDA-Public Use
  Company Number: US-TEVA-780934USA

PATIENT
  Age: 46 Year
  Sex: Male

DRUGS (2)
  1. ALPRAZOLAM. [Suspect]
     Active Substance: ALPRAZOLAM
     Indication: DRUG USE DISORDER
     Route: 065
  2. U 47700 [Suspect]
     Active Substance: U-47700
     Indication: DRUG USE DISORDER
     Route: 065

REACTIONS (2)
  - Drug use disorder [Fatal]
  - Death [Fatal]
